FAERS Safety Report 23333519 (Version 1)
Quarter: 2023Q4

REPORT INFORMATION
  Report Type: Spontaneous
  Country: US (occurrence: US)
  Receive Date: 20231222
  Receipt Date: 20231222
  Transmission Date: 20240110
  Serious: No
  Sender: FDA-Public Use
  Company Number: US-CTI BIOPHARMA-2023US04222

PATIENT

DRUGS (1)
  1. VONJO [Suspect]
     Active Substance: PACRITINIB
     Indication: Myelofibrosis
     Dosage: 200 MG, BID
     Route: 048
     Dates: start: 20231010, end: 20231017

REACTIONS (5)
  - Asthenia [Unknown]
  - Full blood count abnormal [Unknown]
  - Fatigue [Unknown]
  - Platelet count decreased [Unknown]
  - Dizziness [Unknown]
